FAERS Safety Report 9116052 (Version 1)
Quarter: 2013Q1

REPORT INFORMATION
  Report Type: Spontaneous
  Country: FR (occurrence: FR)
  Receive Date: 20130225
  Receipt Date: 20130225
  Transmission Date: 20140127
  Serious: Yes (Hospitalization)
  Sender: FDA-Public Use
  Company Number: FR-ASTRAZENECA-2013SE11021

PATIENT
  Sex: Male

DRUGS (1)
  1. MERONEM [Suspect]
     Indication: CYSTIC FIBROSIS
     Route: 042

REACTIONS (2)
  - Pyrexia [Recovered/Resolved]
  - Off label use [Recovered/Resolved]
